FAERS Safety Report 6358150-9 (Version None)
Quarter: 2009Q3

REPORT INFORMATION
  Report Type: 
  Country: None (occurrence: None)
  Receive Date: 20090911
  Receipt Date: 20090904
  Transmission Date: 20100115
  Serious: Yes (Hospitalization)
  Sender: FDA-Public Use
  Company Number: TCI2009A03572

PATIENT
  Age: 59 Year
  Sex: Female

DRUGS (3)
  1. LANSOPRAZOLE [Suspect]
     Indication: HELICOBACTER INFECTION
     Dosage: 60 MG (30 MG, 2 IN 1 D) PER ORAL
     Route: 048
     Dates: start: 20090721, end: 20090727
  2. AMOXICILLIN [Suspect]
     Indication: HELICOBACTER INFECTION
     Dosage: 1500 MG (750 MG, 2 IN 1 D) PER ORAL
     Route: 048
     Dates: start: 20090721, end: 20090727
  3. CLARITHROMYCIN [Suspect]
     Indication: HELICOBACTER INFECTION
     Dosage: 400 MG (200 MG, 2 IN 1 D) PER ORAL
     Route: 048
     Dates: start: 20090721, end: 20090727

REACTIONS (2)
  - ECZEMA [None]
  - ERYTHEMA MULTIFORME [None]
